FAERS Safety Report 7002563-9 (Version None)
Quarter: 2010Q3

REPORT INFORMATION
  Report Type: 
  Country: None (occurrence: None)
  Receive Date: 20100920
  Receipt Date: 20100517
  Transmission Date: 20110219
  Serious: No
  Sender: FDA-Public Use
  Company Number: US-ASTRAZENECA-2010SE22512

PATIENT
  Age: 88 Year
  Sex: Female

DRUGS (11)
  1. SEROQUEL [Suspect]
     Indication: ANXIETY
     Route: 048
     Dates: start: 20090101
  2. SEROQUEL [Suspect]
     Indication: FEAR
     Route: 048
     Dates: start: 20090101
  3. SEROQUEL [Suspect]
     Route: 048
     Dates: start: 20100401
  4. SEROQUEL [Suspect]
     Route: 048
     Dates: start: 20100401
  5. SEROQUEL [Suspect]
     Route: 048
     Dates: start: 20100401
  6. SEROQUEL [Suspect]
     Route: 048
     Dates: start: 20100401
  7. SEROQUEL [Suspect]
     Route: 048
     Dates: start: 20100401
  8. SEROQUEL [Suspect]
     Route: 048
     Dates: start: 20100401
  9. EXELON [Concomitant]
  10. CHOLESTEROL MED [Concomitant]
     Indication: BLOOD CHOLESTEROL INCREASED
  11. BP MED [Concomitant]
     Indication: HYPERTENSION

REACTIONS (4)
  - ANXIETY [None]
  - CRYING [None]
  - DRUG INEFFECTIVE [None]
  - INSOMNIA [None]
